FAERS Safety Report 24548264 (Version 4)
Quarter: 2024Q4

REPORT INFORMATION
  Report Type: Report from Study
  Country: US (occurrence: US)
  Receive Date: 20241025
  Receipt Date: 20241212
  Transmission Date: 20250115
  Serious: Yes (Death, Hospitalization, Other)
  Sender: ABBVIE
  Company Number: US-ABBVIE-5976899

PATIENT
  Age: 76 Year
  Sex: Female
  Weight: 71.6 kg

DRUGS (6)
  1. CREON [Suspect]
     Active Substance: PANCRELIPASE AMYLASE\PANCRELIPASE LIPASE\PANCRELIPASE PROTEASE
     Indication: Pancreatic failure
     Dosage: UNIT DOSE: 2 CAPSULE ONE CAPSULE WITH MEALS AND ONE CAPSULE WITH SNACKS?FORM STRENGTH: 36000 UNIT
     Route: 048
     Dates: start: 2016, end: 20241015
  2. FLECAINIDE [Concomitant]
     Active Substance: FLECAINIDE
     Indication: Atrial fibrillation
  3. GABAPENTIN [Concomitant]
     Active Substance: GABAPENTIN
     Indication: Sleep disorder therapy
  4. LISINOPRIL [Concomitant]
     Active Substance: LISINOPRIL
     Indication: Hypertension
  5. PEPCID [Concomitant]
     Active Substance: FAMOTIDINE
     Indication: Dyspepsia
  6. ARICEPT [Concomitant]
     Active Substance: DONEPEZIL HYDROCHLORIDE
     Indication: Dementia

REACTIONS (11)
  - Cardiac arrest [Fatal]
  - Mental disorder [Not Recovered/Not Resolved]
  - Dementia Alzheimer^s type [Not Recovered/Not Resolved]
  - Brain oedema [Not Recovered/Not Resolved]
  - Dyspnoea [Fatal]
  - General physical health deterioration [Not Recovered/Not Resolved]
  - Dementia [Not Recovered/Not Resolved]
  - Sleep apnoea syndrome [Recovering/Resolving]
  - Pemphigus [Recovering/Resolving]
  - Renal disorder [Recovering/Resolving]
  - Unresponsive to stimuli [Fatal]

NARRATIVE: CASE EVENT DATE: 20170101
